FAERS Safety Report 21000877 (Version 2)
Quarter: 2022Q3

REPORT INFORMATION
  Report Type: Spontaneous
  Country: US (occurrence: US)
  Receive Date: 20220624
  Receipt Date: 20220630
  Transmission Date: 20221027
  Serious: No
  Sender: FDA-Public Use
  Company Number: US-NOVARTISTESTPH-NVSC2022US144535

PATIENT
  Sex: Female

DRUGS (1)
  1. PATADAY [Suspect]
     Active Substance: OLOPATADINE HYDROCHLORIDE
     Indication: Mite allergy
     Dosage: ONCE DAILY RELIEF
     Route: 065

REACTIONS (3)
  - Condition aggravated [Recovered/Resolved]
  - Hypersensitivity [Recovered/Resolved]
  - Drug ineffective [Unknown]
